FAERS Safety Report 9311676 (Version 1)
Quarter: 2013Q2

REPORT INFORMATION
  Report Type: Report from Study
  Country: TN (occurrence: TN)
  Receive Date: 20130528
  Receipt Date: 20130528
  Transmission Date: 20140414
  Serious: Yes (Death, Hospitalization)
  Sender: FDA-Public Use
  Company Number: TN-SANOFI-AVENTIS-2013SA050623

PATIENT
  Age: 63 Year
  Sex: Male

DRUGS (9)
  1. PLAVIX [Suspect]
     Indication: ANGINA UNSTABLE
     Route: 048
     Dates: start: 20121220, end: 20130323
  2. PLAVIX [Suspect]
     Indication: STENT PLACEMENT
     Route: 048
     Dates: start: 20121220, end: 20130323
  3. KARDEGIC [Concomitant]
     Route: 048
     Dates: end: 20130323
  4. ALDACTONE [Concomitant]
     Route: 048
     Dates: end: 20130323
  5. LASILIX [Concomitant]
     Route: 048
     Dates: end: 20130323
  6. CORVASAL [Concomitant]
     Route: 048
     Dates: end: 20130323
  7. CRESTOR [Concomitant]
     Route: 048
     Dates: end: 20130323
  8. GLIMEPIRIDE [Concomitant]
     Route: 048
     Dates: end: 20130323
  9. KALEORID [Concomitant]
     Route: 048
     Dates: end: 20130323

REACTIONS (2)
  - Cardiac arrest [Fatal]
  - Oedema peripheral [Unknown]
